FAERS Safety Report 8294466-7 (Version None)
Quarter: 2012Q2

REPORT INFORMATION
  Report Type: 
  Country: None (occurrence: None)
  Receive Date: 20120418
  Receipt Date: 20120413
  Transmission Date: 20120825
  Serious: Yes (Life-Threatening, Hospitalization)
  Sender: FDA-Public Use
  Company Number: GXKR2012DE001463

PATIENT

DRUGS (4)
  1. IMIPENEM [Suspect]
  2. MICAFUNGIN [Suspect]
  3. VANCOMYCIN [Suspect]
  4. CEFTRIAXONE [Suspect]

REACTIONS (2)
  - SUBACUTE HEPATIC FAILURE [None]
  - CHOLESTASIS [None]
